FAERS Safety Report 25267619 (Version 2)
Quarter: 2025Q3

REPORT INFORMATION
  Report Type: Spontaneous
  Country: US (occurrence: US)
  Receive Date: 20250505
  Receipt Date: 20250715
  Transmission Date: 20251020
  Serious: Yes (Hospitalization)
  Sender: MACLEODS
  Company Number: US-MACLEODS PHARMA-MAC2025052828

PATIENT

DRUGS (2)
  1. ARIPIPRAZOLE [Suspect]
     Active Substance: ARIPIPRAZOLE
     Indication: Mood swings
     Dosage: MONTHLY INJECTIONS
     Route: 065
  2. OXCARBAZEPINE [Suspect]
     Active Substance: OXCARBAZEPINE
     Indication: Mood swings
     Route: 065

REACTIONS (5)
  - Mania [Recovered/Resolved]
  - Symptom recurrence [Recovered/Resolved]
  - Bipolar disorder [Recovered/Resolved]
  - Antipsychotic drug level below therapeutic [Unknown]
  - Drug interaction [Unknown]
